FAERS Safety Report 6285264-4 (Version None)
Quarter: 2009Q3

REPORT INFORMATION
  Report Type: 
  Country: None (occurrence: None)
  Receive Date: 20090727
  Receipt Date: 20090724
  Transmission Date: 20100115
  Serious: Yes (Death, Other)
  Sender: FDA-Public Use
  Company Number: JP-JNJFOC-20090708076

PATIENT
  Sex: Female
  Weight: 30 kg

DRUGS (3)
  1. DUROTEP MT PATCH [Suspect]
     Indication: CANCER PAIN
     Route: 062
  2. OXYCONTIN [Suspect]
     Indication: CANCER PAIN
     Route: 048
  3. VOLTAREN [Concomitant]
     Indication: ANALGESIC THERAPY
     Route: 054

REACTIONS (2)
  - DELIRIUM [None]
  - PANCREATIC CARCINOMA [None]
